FAERS Safety Report 9294817 (Version 3)
Quarter: 2013Q3

REPORT INFORMATION
  Report Type: Report from Study
  Country: BE (occurrence: BE)
  Receive Date: 20130517
  Receipt Date: 20130701
  Transmission Date: 20140515
  Serious: Yes (Hospitalization)
  Sender: FDA-Public Use
  Company Number: BE-BAYER-2012-123765

PATIENT
  Age: 54 Year
  Sex: Male
  Weight: 95 kg

DRUGS (8)
  1. REGORAFENIB [Suspect]
     Indication: COLORECTAL CANCER METASTATIC
     Dosage: 160 MG, QD  (3 WEEKS ON/ 1 WEEK OFF)
     Route: 048
     Dates: start: 20121001, end: 20121021
  2. REGORAFENIB [Suspect]
     Indication: COLORECTAL CANCER METASTATIC
     Dosage: 160 MG DAILY (3 WEEKS ON/ 1 WEEK OFF)
     Route: 048
     Dates: start: 20121029, end: 20121112
  3. GLUCOPHAGE [Concomitant]
     Indication: DIABETES MELLITUS
     Dosage: 875 MG, QD
     Route: 048
     Dates: start: 2012
  4. DAFALGAN [Concomitant]
     Indication: PAIN
     Dosage: 1 G DAILY
     Route: 048
  5. CONTRAMAL [Concomitant]
     Indication: ABDOMINAL PAIN
     Dosage: UNK
     Route: 048
     Dates: start: 20121008, end: 20121029
  6. MOVICOL [Concomitant]
     Indication: CONSTIPATION PROPHYLAXIS
     Dosage: 13.5 MG DAILY PRN
     Route: 048
  7. AUGMENTIN [Concomitant]
     Indication: URINARY TRACT INFECTION
     Dosage: UNK
     Route: 048
     Dates: start: 20120919, end: 20121001
  8. XYZALL [Concomitant]
     Indication: ALLERGY PROPHYLAXIS
     Dosage: 5 MG, QD
     Route: 048
     Dates: start: 20120919, end: 20121008

REACTIONS (4)
  - Pancreatic fistula [Recovered/Resolved]
  - Oesophageal ulcer [Recovered/Resolved]
  - Gastrointestinal haemorrhage [Recovered/Resolved]
  - Anaemia [Not Recovered/Not Resolved]
